FAERS Safety Report 5279529-2 (Version None)
Quarter: 2007Q1

REPORT INFORMATION
  Report Type: 
  Country: None (occurrence: None)
  Receive Date: 20070328
  Receipt Date: 20070316
  Transmission Date: 20070707
  Serious: Yes (Other)
  Sender: FDA-Public Use
  Company Number: FR-PFIZER INC-2007013736

PATIENT
  Sex: Female
  Weight: 53.5 kg

DRUGS (2)
  1. SALAZOPYRINE [Suspect]
     Indication: CROHN'S DISEASE
     Dosage: DAILY DOSE:1000MG
     Route: 048
  2. ORAL CONTRACEPTIVE NOS [Concomitant]

REACTIONS (4)
  - HYPERHIDROSIS [None]
  - POLYDIPSIA [None]
  - POLYURIA [None]
  - THIRST [None]
